FAERS Safety Report 7211373-9 (Version None)
Quarter: 2011Q1

REPORT INFORMATION
  Report Type: 
  Country: None (occurrence: None)
  Receive Date: 20110105
  Receipt Date: 20101207
  Transmission Date: 20110831
  Serious: Yes (Hospitalization)
  Sender: FDA-Public Use
  Company Number: US-BAYER-201023575NA

PATIENT
  Sex: Female
  Weight: 84 kg

DRUGS (3)
  1. FEXOFENADINE HCL [Concomitant]
     Route: 048
     Dates: start: 20091113
  2. YAZ [Suspect]
     Indication: CONTRACEPTION
     Route: 048
  3. YASMIN [Suspect]
     Indication: ORAL CONTRACEPTION
     Route: 048
     Dates: start: 20090801, end: 20100115

REACTIONS (3)
  - PULMONARY EMBOLISM [None]
  - CARDIOMEGALY [None]
  - DEEP VEIN THROMBOSIS [None]
